FAERS Safety Report 9421133 (Version 1)
Quarter: 2013Q3

REPORT INFORMATION
  Report Type: Spontaneous
  Country: GR (occurrence: GR)
  Receive Date: 20130725
  Receipt Date: 20130725
  Transmission Date: 20140515
  Serious: Yes (Hospitalization)
  Sender: FDA-Public Use
  Company Number: PHHY2013GR077030

PATIENT
  Age: 78 Year
  Sex: Male

DRUGS (2)
  1. THIAMAZOLE [Suspect]
     Indication: BASEDOW^S DISEASE
  2. DIURETICS [Concomitant]

REACTIONS (20)
  - Lupus-like syndrome [Unknown]
  - Dyspnoea [Unknown]
  - Malaise [Unknown]
  - Myalgia [Unknown]
  - Arthralgia [Unknown]
  - Local swelling [Unknown]
  - Weight increased [Unknown]
  - Chromaturia [Unknown]
  - Jugular vein distension [Unknown]
  - Breath sounds abnormal [Unknown]
  - Splenomegaly [Unknown]
  - Erythema nodosum [Unknown]
  - Pleural effusion [Unknown]
  - Hepatosplenomegaly [Unknown]
  - Lymphadenopathy [Unknown]
  - Lupus nephritis [Unknown]
  - Glomerulonephritis membranoproliferative [Unknown]
  - Non-Hodgkin^s lymphoma [Unknown]
  - Glomerular filtration rate decreased [Unknown]
  - Haematuria [Unknown]
